FAERS Safety Report 9695119 (Version 6)
Quarter: 2015Q2

REPORT INFORMATION
  Report Type: Report from Study
  Country: CA (occurrence: CA)
  Receive Date: 20131119
  Receipt Date: 20150525
  Transmission Date: 20150821
  Serious: Yes (Death, Hospitalization)
  Sender: FDA-Public Use
  Company Number: PHHY2013CA131483

PATIENT
  Age: 66 Year
  Sex: Female

DRUGS (1)
  1. SANDOSTATIN LAR DEPOT [Suspect]
     Active Substance: OCTREOTIDE ACETATE
     Indication: NEUROENDOCRINE TUMOUR
     Dosage: 30 MG, EVERY 4 WEEKS
     Route: 030
     Dates: start: 20121121, end: 20150513

REACTIONS (9)
  - Fatigue [Unknown]
  - Injection site pain [Unknown]
  - Death [Fatal]
  - Back pain [Unknown]
  - Renal failure [Recovering/Resolving]
  - Asthenia [Unknown]
  - Dyspepsia [Unknown]
  - Weight decreased [Unknown]
  - Abdominal pain upper [Unknown]

NARRATIVE: CASE EVENT DATE: 20131113
